FAERS Safety Report 4644833-5 (Version None)
Quarter: 2005Q2

REPORT INFORMATION
  Report Type: 
  Country: None (occurrence: None)
  Receive Date: 20050422
  Receipt Date: 20050407
  Transmission Date: 20051028
  Serious: Yes (Hospitalization)
  Sender: FDA-Public Use
  Company Number: TNZFR200500032

PATIENT
  Age: 69 Year
  Sex: Female

DRUGS (9)
  1. INNOHEP [Suspect]
     Dosage: 4500 IU (4500 IU, ONCEDAILY), SUBCUTANEOUS
     Route: 058
     Dates: start: 20040914, end: 20041124
  2. RIFAMPICIN [Suspect]
     Indication: STAPHYLOCOCCAL SEPSIS
     Dosage: 1200 MG (600 MG, TWICE DAILY), ORAL
     Route: 048
     Dates: start: 20041015, end: 20041124
  3. FUCIDIN (FUSIDATE SODIUM) (250 MILLIGRAM, TABLETS) [Suspect]
  4. LYSANXIA (PRAZEPAM) [Concomitant]
  5. CITALOPRAM HYDROBROMIDE [Concomitant]
  6. VANCOMYCIN [Concomitant]
  7. GENTAMICIN [Concomitant]
  8. SINTROM [Concomitant]
  9. ORGARAN [Concomitant]

REACTIONS (10)
  - ALANINE AMINOTRANSFERASE INCREASED [None]
  - BLOOD ALKALINE PHOSPHATASE INCREASED [None]
  - EOSINOPHILIA [None]
  - IATROGENIC INJURY [None]
  - JAUNDICE [None]
  - LIVER DISORDER [None]
  - PRURITUS [None]
  - PURPURA [None]
  - SEPTIC ARTHRITIS STAPHYLOCOCCAL [None]
  - THROMBOCYTOPENIA [None]
